FAERS Safety Report 10373849 (Version 1)
Quarter: 2014Q1

REPORT INFORMATION
  Report Type: Spontaneous
  Country: US (occurrence: None)
  Receive Date: 20140306
  Receipt Date: 20140306
  Transmission Date: 20141002
  Serious: Yes (Hospitalization)
  Sender: FDA-Public Use
  Company Number: 163-21880-13094171

PATIENT
  Age: 66 Year
  Sex: Female

DRUGS (5)
  1. REVLIMID [Suspect]
     Indication: MYELOFIBROSIS
     Dosage: 10 MG, 28 IN 28 D, PO
     Route: 048
     Dates: start: 20130916, end: 20130921
  2. SPIRIVA HANDIHALER [Concomitant]
  3. JAKAFI (RUXOLITINIB) (15 MILLIGRAM, TABLETS) [Concomitant]
  4. POTASSIUM CHLORIDE [Concomitant]
  5. MULTIVITAMINS [Concomitant]

REACTIONS (4)
  - Dyspnoea [None]
  - Pruritus [None]
  - Dyspepsia [None]
  - Rash [None]
